FAERS Safety Report 9631779 (Version 2)
Quarter: 2013Q4

REPORT INFORMATION
  Report Type: Spontaneous
  Country: JP (occurrence: JP)
  Receive Date: 20131018
  Receipt Date: 20131118
  Transmission Date: 20140711
  Serious: Yes (Death, Other)
  Sender: FDA-Public Use
  Company Number: JP-SA-2013SA102849

PATIENT
  Age: 44 Year
  Sex: Female

DRUGS (4)
  1. PACLITAXEL [Suspect]
     Indication: NEOPLASM OF THYMUS
     Route: 065
  2. CARBOPLATIN [Suspect]
     Indication: NEOPLASM OF THYMUS
     Route: 065
  3. TAXOTERE [Suspect]
     Indication: NEOPLASM OF THYMUS
     Route: 065
  4. NEDAPLATIN [Suspect]
     Indication: NEOPLASM OF THYMUS
     Route: 065

REACTIONS (4)
  - Aplastic anaemia [Not Recovered/Not Resolved]
  - Pancytopenia [Not Recovered/Not Resolved]
  - Pulmonary alveolar haemorrhage [Fatal]
  - Respiratory failure [Fatal]
